FAERS Safety Report 6263199-0 (Version None)
Quarter: 2009Q3

REPORT INFORMATION
  Report Type: 
  Country: None (occurrence: None)
  Receive Date: 20090710
  Receipt Date: 20090706
  Transmission Date: 20100115
  Serious: Yes (Hospitalization)
  Sender: FDA-Public Use
  Company Number: BR-BRISTOL-MYERS SQUIBB COMPANY-14692651

PATIENT
  Age: 21 Year
  Sex: Male

DRUGS (1)
  1. HYDREA [Suspect]
     Indication: SICKLE CELL ANAEMIA
     Dosage: STARTED 9 YEARS AGO FORM-TABS

REACTIONS (1)
  - SICKLE CELL ANAEMIA WITH CRISIS [None]
